FAERS Safety Report 17721161 (Version 4)
Quarter: 2020Q2

REPORT INFORMATION
  Report Type: Spontaneous
  Country: ES (occurrence: ES)
  Receive Date: 20200429
  Receipt Date: 20200508
  Transmission Date: 20200714
  Serious: Yes (Hospitalization, Other)
  Sender: FDA-Public Use
  Company Number: ES-PFIZER INC-2020167112

PATIENT
  Age: 45 Year
  Sex: Female

DRUGS (3)
  1. ZELDOX [Suspect]
     Active Substance: ZIPRASIDONE
     Dosage: 60 MG
  2. ZELDOX [Suspect]
     Active Substance: ZIPRASIDONE
     Dosage: 40 MG (AT NIGHT)
     Dates: start: 2000
  3. ZELDOX [Suspect]
     Active Substance: ZIPRASIDONE
     Dosage: 240 MG, DAILY (1 AT NOON AND 2 AT NIGHT)

REACTIONS (29)
  - Tic [Unknown]
  - Insomnia [Unknown]
  - Balance disorder [Unknown]
  - Flatulence [Unknown]
  - Restlessness [Unknown]
  - Impaired driving ability [Unknown]
  - Eructation [Unknown]
  - Jaw disorder [Unknown]
  - Ephelides [Unknown]
  - Confusional state [Unknown]
  - Tachycardia [Unknown]
  - Peripheral swelling [Unknown]
  - Hypoaesthesia [Unknown]
  - Photosensitivity reaction [Unknown]
  - Anger [Unknown]
  - Drug dependence [Unknown]
  - Weight decreased [Unknown]
  - Hyperhidrosis [Unknown]
  - Gait disturbance [Unknown]
  - Fear [Unknown]
  - Anxiety [Unknown]
  - Eating disorder [Unknown]
  - Prescribed overdose [Unknown]
  - Defaecation disorder [Unknown]
  - Emotional distress [Unknown]
  - Skin sensitisation [Unknown]
  - Rash macular [Unknown]
  - Eczema [Unknown]
  - Nightmare [Unknown]
